FAERS Safety Report 21379659 (Version 1)
Quarter: 2022Q3

REPORT INFORMATION
  Report Type: Spontaneous
  Country: US (occurrence: None)
  Receive Date: 20220923
  Receipt Date: 20220923
  Transmission Date: 20221027
  Serious: Yes (Other)
  Sender: FDA-Public Use
  Company Number: None

PATIENT
  Age: 52 Year
  Sex: Male

DRUGS (14)
  1. AMBRISENTAN [Suspect]
     Active Substance: AMBRISENTAN
     Indication: Pulmonary hypertension
     Dosage: FREQUENCY : DAILY;?
     Route: 048
     Dates: start: 20220121
  2. TADALAFIL [Concomitant]
     Active Substance: TADALAFIL
  3. METOPROLOL [Concomitant]
     Active Substance: METOPROLOL
  4. WARFARIN [Concomitant]
     Active Substance: WARFARIN
  5. MYCOPHENOLIC ACID [Concomitant]
     Active Substance: MYCOPHENOLIC ACID
  6. AMLODIPINE [Concomitant]
     Active Substance: AMLODIPINE BESYLATE
  7. HYDROXYCHLOROQUINE [Concomitant]
     Active Substance: HYDROXYCHLOROQUINE
  8. FUROSEMIDE [Concomitant]
     Active Substance: FUROSEMIDE
  9. FERROUS SULFATE [Concomitant]
     Active Substance: FERROUS SULFATE
  10. ALBUTEROL SULFATE [Concomitant]
     Active Substance: ALBUTEROL SULFATE
  11. OMEPRAZOLE [Concomitant]
     Active Substance: OMEPRAZOLE
  12. TAC top oint [Concomitant]
  13. mometasone top oint [Concomitant]
  14. lidex top oint [Concomitant]

REACTIONS (3)
  - Palpitations [None]
  - Supraventricular tachycardia [None]
  - Chest pain [None]

NARRATIVE: CASE EVENT DATE: 20220914
